FAERS Safety Report 10265205 (Version 1)
Quarter: 2014Q2

REPORT INFORMATION
  Report Type: Spontaneous
  Country: US (occurrence: None)
  Receive Date: 20140530
  Receipt Date: 20140530
  Transmission Date: 20141212
  Serious: Yes (Hospitalization)
  Sender: FDA-Public Use
  Company Number: 2013039318

PATIENT
  Sex: Male
  Weight: 15.88 kg

DRUGS (4)
  1. HIZENTRA (IMMUNOGLOBULIN HUMAN NORMAL) [Suspect]
     Indication: IMMUNODEFICIENCY
     Dosage: 2 G, 1X/WEEK, OVER 10-15 MIN SUBCUTANEOUS
     Route: 058
  2. DIPHENHYDRAMINE (DIPHENHYDRAMINE) [Concomitant]
  3. EPI PEN JR. AUTOINJECTOR (EPINEPHRINE HYDROCHLORIDE) [Concomitant]
  4. LMX (LIDOCAINE) [Concomitant]

REACTIONS (1)
  - Dyspnoea [None]
